FAERS Safety Report 6219177-0 (Version None)
Quarter: 2009Q2

REPORT INFORMATION
  Report Type: 
  Country: None (occurrence: None)
  Receive Date: 20090605
  Receipt Date: 20090605
  Transmission Date: 20091009
  Serious: Yes (Other)
  Sender: FDA-Public Use
  Company Number: None

PATIENT
  Sex: Male
  Weight: 72.5755 kg

DRUGS (6)
  1. LAMOTRIGINE [Suspect]
     Indication: BIPOLAR DISORDER
     Dosage: 200 MG. TWICE DAILY PO
     Route: 048
     Dates: start: 20090515, end: 20090604
  2. CLONAZEPAM [Concomitant]
  3. PROPRANOLOL HYDROCHLORIDE [Concomitant]
  4. SEROQUEL [Concomitant]
  5. BUPROPRION HYDROCHLORIDE-EXTENDED RELEASE -SR- [Concomitant]
  6. ACIPHEX [Concomitant]

REACTIONS (8)
  - ANXIETY [None]
  - CONDITION AGGRAVATED [None]
  - DRUG INEFFECTIVE [None]
  - GASTRIC DISORDER [None]
  - MOOD ALTERED [None]
  - MOOD SWINGS [None]
  - NO THERAPEUTIC RESPONSE [None]
  - PRODUCT SUBSTITUTION ISSUE [None]
